FAERS Safety Report 8346898-6 (Version None)
Quarter: 2012Q2

REPORT INFORMATION
  Report Type: 
  Country: None (occurrence: None)
  Receive Date: 20120509
  Receipt Date: 20120428
  Transmission Date: 20120825
  Serious: Yes (Other)
  Sender: FDA-Public Use
  Company Number: CA-JNJFOC-20120414258

PATIENT
  Sex: Male
  Weight: 58 kg

DRUGS (3)
  1. REMICADE [Suspect]
     Indication: PRODUCT USED FOR UNKNOWN INDICATION
     Route: 042
     Dates: start: 20120428
  2. REMICADE [Suspect]
     Route: 042
     Dates: start: 20110301
  3. MERCAPTOPURINE [Concomitant]
     Route: 065

REACTIONS (7)
  - HAEMATOCHEZIA [None]
  - HYPERHIDROSIS [None]
  - RASH [None]
  - RECTAL HAEMORRHAGE [None]
  - INFUSION RELATED REACTION [None]
  - MALAISE [None]
  - DIZZINESS [None]
